FAERS Safety Report 8528306-5 (Version None)
Quarter: 2012Q3

REPORT INFORMATION
  Report Type: 
  Country: None (occurrence: None)
  Receive Date: 20120721
  Receipt Date: 20120717
  Transmission Date: 20120928
  Serious: Yes (Hospitalization, Other)
  Sender: FDA-Public Use
  Company Number: DE-ABBOTT-11P-062-0849516-00

PATIENT
  Sex: Male

DRUGS (4)
  1. HUMIRA [Suspect]
     Dates: start: 20120315
  2. HUMIRA [Suspect]
     Route: 058
     Dates: start: 20110901, end: 20120401
  3. HUMIRA [Suspect]
     Indication: CROHN'S DISEASE
     Dosage: 40MG EOW , WEDNESDAYS
     Dates: start: 20100401, end: 20100801
  4. NOVALGIN [Concomitant]
     Indication: PRODUCT USED FOR UNKNOWN INDICATION
     Dosage: 20-40 DROPS PER DAY IF REQUIRED

REACTIONS (8)
  - ILEOSTOMY [None]
  - INGUINAL HERNIA [None]
  - ILEUS PARALYTIC [None]
  - ERYTHEMA [None]
  - OMENTECTOMY [None]
  - ABSCESS [None]
  - GASTRIC ATONY [None]
  - ADHESIOLYSIS [None]
